FAERS Safety Report 16174507 (Version 2)
Quarter: 2019Q2

REPORT INFORMATION
  Report Type: Spontaneous
  Country: DE (occurrence: DE)
  Receive Date: 20190409
  Receipt Date: 20190607
  Transmission Date: 20190711
  Serious: Yes (Hospitalization, Other)
  Sender: FDA-Public Use
  Company Number: DE-SA-2019SA096483

PATIENT
  Age: 59 Year
  Sex: Male

DRUGS (1)
  1. DUPIXENT [Suspect]
     Active Substance: DUPILUMAB
     Indication: DERMATITIS ATOPIC
     Dosage: 300 MG, QOW
     Route: 058
     Dates: start: 20180329, end: 20190404

REACTIONS (4)
  - Dermatitis atopic [Unknown]
  - Condition aggravated [Not Recovered/Not Resolved]
  - Palatal disorder [Unknown]
  - Squamous cell carcinoma of the oral cavity [Not Recovered/Not Resolved]

NARRATIVE: CASE EVENT DATE: 201812
